FAERS Safety Report 4974073-1 (Version None)
Quarter: 2006Q2

REPORT INFORMATION
  Report Type: 
  Country: None (occurrence: None)
  Receive Date: 20060417
  Receipt Date: 20051017
  Transmission Date: 20061013
  Serious: Yes (Other)
  Sender: FDA-Public Use
  Company Number: FR-GLAXOSMITHKLINE-B0398459A

PATIENT
  Age: 45 Year
  Sex: Female

DRUGS (4)
  1. COMBIVIR [Suspect]
     Indication: HIV INFECTION
     Dosage: 1TAB TWICE PER DAY
     Route: 048
  2. INVIRASE [Suspect]
     Indication: HIV INFECTION
     Dosage: 3CAP TWICE PER DAY
     Route: 048
  3. NORVIR [Suspect]
     Indication: HIV INFECTION
     Dosage: 1CAP TWICE PER DAY
     Route: 048
  4. ANTI-EPILEPTIC DRUG [Concomitant]
     Indication: EPILEPSY
     Route: 048

REACTIONS (2)
  - HYPONATRAEMIA [None]
  - INAPPROPRIATE ANTIDIURETIC HORMONE SECRETION [None]
